FAERS Safety Report 18877380 (Version 2)
Quarter: 2021Q1

REPORT INFORMATION
  Report Type: Spontaneous
  Country: CH (occurrence: CH)
  Receive Date: 20210211
  Receipt Date: 20210222
  Transmission Date: 20210420
  Serious: Yes (Death, Other)
  Sender: FDA-Public Use
  Company Number: CH-TEVA-2021-CH-1877069

PATIENT
  Age: 50 Year
  Sex: Female

DRUGS (8)
  1. DILTIAZEM. [Suspect]
     Active Substance: DILTIAZEM
     Indication: CALCINOSIS
     Route: 065
  2. IBANDRONATE [Suspect]
     Active Substance: IBANDRONATE SODIUM
     Indication: CALCINOSIS
     Route: 065
  3. BARICITINIB. [Suspect]
     Active Substance: BARICITINIB
     Indication: CALCINOSIS
     Dosage: 2 MILLIGRAM DAILY;
     Route: 065
  4. BELIMUMAB [Suspect]
     Active Substance: BELIMUMAB
     Indication: CALCINOSIS
     Route: 065
  5. CYCLOPHOSPHAMIDE. [Suspect]
     Active Substance: CYCLOPHOSPHAMIDE
     Indication: CALCINOSIS
     Route: 065
  6. BARICITINIB. [Suspect]
     Active Substance: BARICITINIB
     Indication: CALCINOSIS
     Dosage: 4 MILLIGRAM DAILY;
     Route: 065
  7. COLCHICINE. [Suspect]
     Active Substance: COLCHICINE
     Indication: CALCINOSIS
     Route: 065
  8. HYDROXYCHLOROQUINE [Suspect]
     Active Substance: HYDROXYCHLOROQUINE
     Indication: CALCINOSIS
     Route: 065

REACTIONS (3)
  - Off label use [Fatal]
  - Drug ineffective [Unknown]
  - Pneumonia [Fatal]
